FAERS Safety Report 24717045 (Version 1)
Quarter: 2024Q4

REPORT INFORMATION
  Report Type: Spontaneous
  Country: US (occurrence: None)
  Receive Date: 20241210
  Receipt Date: 20241210
  Transmission Date: 20250115
  Serious: No
  Sender: Public
  Company Number: None

PATIENT
  Age: 40 Year
  Sex: Male
  Weight: 78.02 kg

DRUGS (1)
  1. CAPECITABINE [Suspect]
     Active Substance: CAPECITABINE
     Indication: Gastric cancer
     Dosage: OTHER QUANTITY : TAKE 2 TABLETS AM + PM, WITH A 7 DAY BREAK;?FREQUENCY : AS DIRECTED;?
     Dates: start: 202411

REACTIONS (1)
  - Hospitalisation [None]
